FAERS Safety Report 7493657-2 (Version None)
Quarter: 2011Q2

REPORT INFORMATION
  Report Type: 
  Country: None (occurrence: None)
  Receive Date: 20110520
  Receipt Date: 20110418
  Transmission Date: 20111010
  Serious: Yes (Hospitalization, Other)
  Sender: FDA-Public Use
  Company Number: US-BAYER-201027997NA

PATIENT
  Age: 40 Year
  Sex: Female
  Weight: 90.2 kg

DRUGS (2)
  1. YAZ [Suspect]
     Route: 048
     Dates: start: 20080301, end: 20080515
  2. YASMIN [Suspect]
     Dosage: UNK
     Dates: start: 20060101, end: 20091001

REACTIONS (6)
  - ABDOMINAL PAIN UPPER [None]
  - CHOLELITHIASIS [None]
  - CHOLECYSTITIS [None]
  - PAIN [None]
  - CHOLECYSTITIS CHRONIC [None]
  - CHOLECYSTITIS ACUTE [None]
